FAERS Safety Report 18315310 (Version 1)
Quarter: 2020Q3

REPORT INFORMATION
  Report Type: Spontaneous
  Country: GB (occurrence: GB)
  Receive Date: 20200926
  Receipt Date: 20200926
  Transmission Date: 20201103
  Serious: Yes (Hospitalization)
  Sender: FDA-Public Use
  Company Number: GB-TEVA-2020-GB-1830839

PATIENT
  Age: 29 Year
  Sex: Male
  Weight: 55 kg

DRUGS (4)
  1. CLARITHROMYCIN. [Suspect]
     Active Substance: CLARITHROMYCIN
     Indication: PHARYNGITIS
     Dosage: 1000 MG
     Route: 048
     Dates: start: 20191018, end: 20191022
  2. MYCOPHENOLATE MOFETIL. [Concomitant]
     Active Substance: MYCOPHENOLATE MOFETIL
  3. TACROLIMUS. [Interacting]
     Active Substance: TACROLIMUS
     Indication: ORGAN TRANSPLANT
     Dosage: 9 MG
     Route: 065
  4. PREDNISOLONE. [Concomitant]
     Active Substance: PREDNISOLONE

REACTIONS (2)
  - Drug level increased [Recovered/Resolved]
  - Labelled drug-drug interaction medication error [Recovered/Resolved]

NARRATIVE: CASE EVENT DATE: 20191022
